FAERS Safety Report 8886081 (Version 1)
Quarter: 2012Q4

REPORT INFORMATION
  Report Type: 
  Country: US (occurrence: US)
  Receive Date: 20121105
  Receipt Date: 20121105
  Transmission Date: 20130627
  Serious: No
  Sender: FDA-Public Use
  Company Number: US-TEVA-367331USA

PATIENT
  Age: 9 Year
  Sex: Male

DRUGS (1)
  1. QVAR [Suspect]
     Dosage: 80 Microgram Daily; 1 puff to 2 puffs

REACTIONS (1)
  - Headache [Unknown]
